FAERS Safety Report 8287511-6 (Version None)
Quarter: 2012Q2

REPORT INFORMATION
  Report Type: 
  Country: None (occurrence: None)
  Receive Date: 20120416
  Receipt Date: 20120411
  Transmission Date: 20120825
  Serious: Yes (Death, Other)
  Sender: FDA-Public Use
  Company Number: US-ELI_LILLY_AND_COMPANY-US201204003720

PATIENT
  Sex: Male

DRUGS (5)
  1. ALIMTA [Suspect]
     Indication: NON-SMALL CELL LUNG CANCER
     Dosage: UNK, UNKNOWN
  2. VITAMIN B-12 [Concomitant]
  3. NEUPOGEN [Concomitant]
  4. FOLIC ACID [Concomitant]
  5. CARBOPLATIN [Concomitant]

REACTIONS (2)
  - DEATH [None]
  - PANCYTOPENIA [None]
